FAERS Safety Report 6788425-0 (Version None)
Quarter: 2010Q2

REPORT INFORMATION
  Report Type: 
  Country: None (occurrence: None)
  Receive Date: 20100623
  Receipt Date: 20080312
  Transmission Date: 20101027
  Serious: Yes (Other)
  Sender: FDA-Public Use
  Company Number: US-PFIZER INC-2008021025

PATIENT
  Age: 80 Year
  Sex: Female

DRUGS (1)
  1. CADUET [Suspect]

REACTIONS (1)
  - CARDIAC FAILURE [None]
